FAERS Safety Report 15784200 (Version 5)
Quarter: 2019Q3

REPORT INFORMATION
  Report Type: Spontaneous
  Country: CA (occurrence: CA)
  Receive Date: 20190103
  Receipt Date: 20190711
  Transmission Date: 20191004
  Serious: Yes (Other)
  Sender: FDA-Public Use
  Company Number: CA-CELLTRION INC.-2018CA020031

PATIENT

DRUGS (18)
  1. INFLECTRA [Suspect]
     Active Substance: INFLIXIMAB-DYYB
     Dosage: 195 MG, (EVERY 0, 2, 6, 8 WEEKS)
     Route: 042
     Dates: start: 20181203
  2. ACETAMINOPHEN. [Concomitant]
     Active Substance: ACETAMINOPHEN
     Dosage: 650 MG, UNK
     Route: 048
     Dates: start: 20190424, end: 20190424
  3. HYDROCORTISONE. [Concomitant]
     Active Substance: HYDROCORTISONE
     Indication: PREMEDICATION
     Dosage: 100 MG, UNK
     Route: 042
  4. INFLECTRA [Suspect]
     Active Substance: INFLIXIMAB-DYYB
     Dosage: 195 MG, (EVERY 0, 2, 6, 8 WEEKS)
     Route: 042
     Dates: start: 20180608
  5. ERGOCALCIFEROL. [Concomitant]
     Active Substance: ERGOCALCIFEROL
     Dosage: 50000 IU, UNK
     Dates: start: 201801
  6. HYDROCORTISONE. [Concomitant]
     Active Substance: HYDROCORTISONE
     Dosage: 100 MG, UNK
     Route: 042
     Dates: start: 20190424, end: 20190424
  7. INFLECTRA [Suspect]
     Active Substance: INFLIXIMAB-DYYB
     Dosage: 195 MG, (EVERY 0, 2, 6, 8 WEEKS)
     Route: 042
     Dates: start: 20190424
  8. DIPHENHYDRAMINE. [Concomitant]
     Active Substance: DIPHENHYDRAMINE
     Dosage: 25 MG, UNK
     Route: 048
     Dates: start: 20190424, end: 20190424
  9. INFLECTRA [Suspect]
     Active Substance: INFLIXIMAB-DYYB
     Indication: RHEUMATOID ARTHRITIS
     Dosage: 195 MG, (EVERY 0, 2, 6, 8 WEEKS)
     Route: 042
     Dates: start: 20180427
  10. INFLECTRA [Suspect]
     Active Substance: INFLIXIMAB-DYYB
     Dosage: 195 MG, (EVERY 0, 2, 6, 8 WEEKS)
     Route: 042
     Dates: start: 20190124
  11. INFLECTRA [Suspect]
     Active Substance: INFLIXIMAB-DYYB
     Dosage: 195 MG, (EVERY 0, 2, 6, 8 WEEKS)
     Route: 042
     Dates: start: 20180511
  12. INFLECTRA [Suspect]
     Active Substance: INFLIXIMAB-DYYB
     Dosage: 195 MG, (EVERY 0, 2, 6, 8 WEEKS)
     Route: 042
     Dates: start: 20190301
  13. ACETAMINOPHEN. [Concomitant]
     Active Substance: ACETAMINOPHEN
     Indication: PREMEDICATION
     Dosage: 650 MG, UNK
     Route: 048
  14. DIPHENHYDRAMINE. [Concomitant]
     Active Substance: DIPHENHYDRAMINE
     Dosage: 50 MG, UNK
     Route: 048
     Dates: start: 20190424, end: 20190424
  15. INFLECTRA [Suspect]
     Active Substance: INFLIXIMAB-DYYB
     Dosage: 195 MG, (EVERY 0, 2, 6, 8 WEEKS)
     Route: 042
     Dates: start: 20181005
  16. DIPHENHYDRAMINE. [Concomitant]
     Active Substance: DIPHENHYDRAMINE
     Indication: PREMEDICATION
     Dosage: 50 (NO UNIT)
     Route: 048
  17. FOLIC ACID. [Concomitant]
     Active Substance: FOLIC ACID
     Dosage: UNK
     Dates: start: 201801
  18. PREDNISONE. [Concomitant]
     Active Substance: PREDNISONE
     Dosage: 2 TABS, 1X/DAY
     Route: 048
     Dates: start: 20180322

REACTIONS (11)
  - Rash generalised [Not Recovered/Not Resolved]
  - Rash pruritic [Not Recovered/Not Resolved]
  - Feeling cold [Unknown]
  - Heart rate irregular [Unknown]
  - Off label use [Unknown]
  - Pain [Unknown]
  - Blood pressure fluctuation [Unknown]
  - Tremor [Recovering/Resolving]
  - Eye disorder [Unknown]
  - Rash erythematous [Not Recovered/Not Resolved]
  - Hypertension [Recovered/Resolved]

NARRATIVE: CASE EVENT DATE: 20180427
